FAERS Safety Report 16658839 (Version 2)
Quarter: 2020Q4

REPORT INFORMATION
  Report Type: Report from Study
  Country: US (occurrence: US)
  Receive Date: 20190801
  Receipt Date: 20201107
  Transmission Date: 20210113
  Serious: No
  Sender: FDA-Public Use
  Company Number: PHEH2019US032061

PATIENT
  Sex: Female

DRUGS (1)
  1. GILENYA [Suspect]
     Active Substance: FINGOLIMOD HYDROCHLORIDE
     Indication: RELAPSING-REMITTING MULTIPLE SCLEROSIS
     Dosage: 0.5 MG, QD
     Route: 048
     Dates: start: 20181029

REACTIONS (7)
  - Uterine leiomyoma [Unknown]
  - Dizziness [Unknown]
  - Nausea [Unknown]
  - Depressed mood [Unknown]
  - Decreased interest [Unknown]
  - Vision blurred [Unknown]
  - Depression [Unknown]
